FAERS Safety Report 5397493-2 (Version None)
Quarter: 2007Q3

REPORT INFORMATION
  Report Type: 
  Country: None (occurrence: None)
  Receive Date: 20070726
  Receipt Date: 20070719
  Transmission Date: 20080115
  Serious: Yes (Hospitalization)
  Sender: FDA-Public Use
  Company Number: US-AMGEN-US234887

PATIENT
  Sex: Female

DRUGS (9)
  1. NEUPOGEN [Suspect]
     Indication: NEUTROPENIA
     Route: 058
     Dates: start: 20070601
  2. CARBOPLATIN [Concomitant]
     Route: 065
  3. ETOPOSIDE [Concomitant]
     Route: 065
  4. LIPITOR [Concomitant]
     Route: 065
  5. LISINOPRIL [Concomitant]
     Route: 065
  6. LEVOTHYROXINE SODIUM [Concomitant]
     Route: 065
  7. LORAZEPAM [Concomitant]
     Route: 065
  8. ZOFRAN [Concomitant]
     Route: 065
  9. COMPAZINE [Concomitant]
     Route: 065

REACTIONS (2)
  - DYSPNOEA [None]
  - PNEUMONIA [None]
